FAERS Safety Report 5019751-3 (Version None)
Quarter: 2006Q2

REPORT INFORMATION
  Report Type: 
  Country: None (occurrence: None)
  Receive Date: 20060607
  Receipt Date: 20060530
  Transmission Date: 20061013
  Serious: Yes (Other)
  Sender: FDA-Public Use
  Company Number: PHFR2006GB01833

PATIENT
  Age: 65 Year
  Sex: Female

DRUGS (5)
  1. TEGRETOL [Suspect]
     Indication: EPILEPSY
     Dosage: 200 G, TID
     Route: 048
     Dates: start: 20060209, end: 20060304
  2. DESLORATADINE [Concomitant]
     Indication: SEASONAL ALLERGY
     Dosage: 10MG/DAY
     Route: 048
     Dates: start: 20040101
  3. ADCAL-D3 [Concomitant]
     Indication: OSTEOPOROSIS
     Dosage: 2 DOSES/DAY
     Route: 048
  4. ALENDRONIC ACID [Concomitant]
     Indication: OSTEOPOROSIS
     Dosage: 70 MG, QW
     Route: 048
     Dates: start: 20050408
  5. PHENOBARBITAL [Concomitant]
     Indication: EPILEPSY
     Dosage: 120MG/DAY
     Route: 048
     Dates: start: 19640101

REACTIONS (3)
  - DEAFNESS UNILATERAL [None]
  - DIZZINESS [None]
  - TINNITUS [None]
